FAERS Safety Report 5604589-6 (Version None)
Quarter: 2008Q1

REPORT INFORMATION
  Report Type: 
  Country: None (occurrence: None)
  Receive Date: 20080128
  Receipt Date: 20080121
  Transmission Date: 20080703
  Serious: Yes (Hospitalization)
  Sender: FDA-Public Use
  Company Number: KR-ASTRAZENECA-2008AP00502

PATIENT
  Age: 17246 Day
  Sex: Female

DRUGS (3)
  1. IRESSA [Suspect]
     Indication: NON-SMALL CELL LUNG CANCER
     Route: 048
     Dates: start: 20070421, end: 20070928
  2. IRESSA [Suspect]
     Route: 048
     Dates: start: 20071030, end: 20071211
  3. KEPPRA [Concomitant]
     Indication: EPILEPSY
     Route: 048
     Dates: start: 20070809

REACTIONS (1)
  - HEPATITIS TOXIC [None]
